FAERS Safety Report 13689495 (Version 1)
Quarter: 2017Q2

REPORT INFORMATION
  Report Type: Spontaneous
  Country: US (occurrence: US)
  Receive Date: 20170623
  Receipt Date: 20170623
  Transmission Date: 20170830
  Serious: Yes (Other)
  Sender: FDA-Public Use
  Company Number: None

PATIENT
  Age: 24 Year
  Sex: Female
  Weight: 66.3 kg

DRUGS (1)
  1. SUBOXONE [Suspect]
     Active Substance: BUPRENORPHINE HYDROCHLORIDE\NALOXONE HYDROCHLORIDE
     Indication: DRUG USE DISORDER
     Dosage: 8-2 MG SUBOXONE SUBLINGUAL TABLET QDAY SUBLINGUAL
     Route: 060
     Dates: start: 20170515

REACTIONS (7)
  - Lethargy [None]
  - Pain [None]
  - Withdrawal syndrome [None]
  - Vomiting [None]
  - Chills [None]
  - Nausea [None]
  - Hyperhidrosis [None]

NARRATIVE: CASE EVENT DATE: 20170519
